FAERS Safety Report 16699623 (Version 5)
Quarter: 2020Q2

REPORT INFORMATION
  Report Type: Spontaneous
  Country: GB (occurrence: GB)
  Receive Date: 20190813
  Receipt Date: 20200430
  Transmission Date: 20200713
  Serious: Yes (Death, Hospitalization)
  Sender: FDA-Public Use
  Company Number: GB-JNJFOC-20190811299

PATIENT
  Age: 55 Year
  Sex: Male

DRUGS (6)
  1. RAMIPRIL. [Concomitant]
     Active Substance: RAMIPRIL
     Indication: HYPERTENSION
     Dosage: 245
  2. RISPERIDONE. [Suspect]
     Active Substance: RISPERIDONE
     Indication: SEIZURE
     Dosage: //2019
     Route: 065
  3. ZARONTIN [Concomitant]
     Active Substance: ETHOSUXIMIDE
  4. RISPERDAL [Suspect]
     Active Substance: RISPERIDONE
     Indication: PETIT MAL EPILEPSY
     Dosage: //2019
     Route: 065
     Dates: start: 2004
  5. AMLODIPINE [Concomitant]
     Active Substance: AMLODIPINE BESYLATE
     Indication: HYPERTENSION
     Dosage: 245
  6. RISPERDAL [Suspect]
     Active Substance: RISPERIDONE
     Indication: SEIZURE
     Dosage: 3 MG FOR 9 YEARS
     Route: 048
     Dates: start: 2004

REACTIONS (30)
  - Gastric cancer [Fatal]
  - Dyskinesia [Unknown]
  - Pollakiuria [Unknown]
  - Hypotension [Unknown]
  - Increased appetite [Unknown]
  - Epilepsy [Unknown]
  - Rash pruritic [Not Recovered/Not Resolved]
  - Seizure [Unknown]
  - Vision blurred [Unknown]
  - Urinary tract infection [Unknown]
  - Disturbance in attention [Unknown]
  - Cough [Unknown]
  - Nausea [Unknown]
  - Lung neoplasm malignant [Fatal]
  - Hyperhidrosis [Unknown]
  - Hyperglycaemia [Unknown]
  - Product use in unapproved indication [Unknown]
  - Off label use [Unknown]
  - Colon cancer [Fatal]
  - Breast enlargement [Unknown]
  - Insomnia [Unknown]
  - Feeling hot [Unknown]
  - Sleep apnoea syndrome [Unknown]
  - Blood glucose increased [Unknown]
  - Abnormal weight gain [Unknown]
  - Dyspnoea [Unknown]
  - Gynaecomastia [Unknown]
  - Vomiting [Unknown]
  - Somnolence [Unknown]
  - Dizziness [Unknown]

NARRATIVE: CASE EVENT DATE: 2004
